FAERS Safety Report 9844817 (Version 1)
Quarter: 2014Q1

REPORT INFORMATION
  Report Type: Spontaneous
  Country: US (occurrence: None)
  Receive Date: 20140122
  Receipt Date: 20140122
  Transmission Date: 20141002
  Serious: Yes (Death, Other)
  Sender: FDA-Public Use
  Company Number: B0960435A

PATIENT
  Age: 47 Year
  Sex: Male

DRUGS (9)
  1. DIPHENHYDRAMINE [Suspect]
     Route: 048
  2. DIAMORPHINE HYDROCHLORIDE [Suspect]
     Route: 048
  3. FLUOXETINE (FLUOXETINE) [Suspect]
     Route: 048
  4. BUPROPION HYDROCHLORIDE [Suspect]
     Route: 048
  5. DEXTROMETHORPHAN HBR [Suspect]
     Route: 048
  6. BENZTROPINE [Suspect]
     Route: 048
  7. QUININE [Suspect]
     Route: 048
  8. DILTIAZEM HYDROCHLORIDE [Suspect]
     Route: 048
  9. ETHANOL [Suspect]
     Route: 048

REACTIONS (2)
  - Drug abuse [None]
  - Exposure via ingestion [None]
